FAERS Safety Report 9485385 (Version 1)
Quarter: 2013Q3

REPORT INFORMATION
  Report Type: Report from Study
  Country: US (occurrence: US)
  Receive Date: 20130829
  Receipt Date: 20130829
  Transmission Date: 20140515
  Serious: Yes (Death)
  Sender: FDA-Public Use
  Company Number: US-ROCHE-1267996

PATIENT
  Sex: Male

DRUGS (3)
  1. BEVACIZUMAB [Suspect]
     Indication: MALIGNANT MELANOMA
     Route: 042
     Dates: start: 20120315
  2. BEVACIZUMAB [Suspect]
     Indication: METASTASES TO LUNG
     Route: 042
     Dates: start: 20120404
  3. BEVACIZUMAB [Suspect]
     Route: 042
     Dates: start: 20120427

REACTIONS (1)
  - Death [Fatal]
